FAERS Safety Report 24423478 (Version 1)
Quarter: 2024Q4

REPORT INFORMATION
  Report Type: Spontaneous
  Country: CA (occurrence: CA)
  Receive Date: 20241010
  Receipt Date: 20241010
  Transmission Date: 20250115
  Serious: Yes (Life-Threatening, Hospitalization)
  Sender: MYLAN
  Company Number: CA-MYLANLABS-2024M1092234

PATIENT
  Age: 58 Year
  Sex: Male

DRUGS (1)
  1. EPINEPHRINE [Suspect]
     Active Substance: EPINEPHRINE
     Indication: Urticaria chronic
     Dosage: UNK
     Route: 030

REACTIONS (3)
  - Acute myocardial infarction [Unknown]
  - Coronary artery stenosis [Unknown]
  - Coronary artery thrombosis [Unknown]
